FAERS Safety Report 21944475 (Version 1)
Quarter: 2023Q1

REPORT INFORMATION
  Report Type: Other
  Country: None (occurrence: FR)
  Receive Date: 20230202
  Receipt Date: 20230202
  Transmission Date: 20230417
  Serious: Yes (Death, Other)
  Sender: FDA-Public Use
  Company Number: FR-Renata Limited-2137402

PATIENT
  Sex: Male

DRUGS (6)
  1. PREGABALIN [Suspect]
     Active Substance: PREGABALIN
     Indication: Product used for unknown indication
     Route: 065
  2. BUPRENORPHINE [Suspect]
     Active Substance: BUPRENORPHINE
     Route: 065
  3. MIDOMAFETAMINE [Suspect]
     Active Substance: MIDOMAFETAMINE
     Route: 065
  4. TENAMFETAMINE [Suspect]
     Active Substance: TENAMFETAMINE
     Route: 065
  5. NORBUPRENORPHINE [Suspect]
     Active Substance: NORBUPRENORPHINE
     Route: 065
  6. 7-AMINOCLONAZEPAM [Suspect]
     Active Substance: 7-AMINOCLONAZEPAM
     Route: 065

REACTIONS (1)
  - Drug abuse [Fatal]
